FAERS Safety Report 7903999-1 (Version None)
Quarter: 2011Q4

REPORT INFORMATION
  Report Type: 
  Country: None (occurrence: None)
  Receive Date: 20111109
  Receipt Date: 20111031
  Transmission Date: 20120403
  Serious: Yes (Other)
  Sender: FDA-Public Use
  Company Number: US-BAYER-200940688NA

PATIENT
  Age: 37 Year
  Sex: Female
  Weight: 82 kg

DRUGS (33)
  1. TRASYLOL [Suspect]
     Indication: ANOMALOUS PULMONARY VENOUS CONNECTION
  2. CELEBREX [Concomitant]
     Indication: ARTHRITIS
  3. FLONASE [Concomitant]
     Dosage: 1 PUFF EACH NOSTRIL
  4. ZOLOFT [Concomitant]
  5. PROCARDIA [Concomitant]
  6. ACETYLSALICYLIC ACID SRT [Concomitant]
     Dosage: 325 MG, QD
     Route: 048
  7. CLONAZEPAM [Concomitant]
     Dosage: 0.5 MG, UNK
     Route: 048
  8. HYDROXYCHLOROQUINE SULFATE [Concomitant]
     Dosage: 200 MG, BID
     Route: 048
  9. ELAVIL [Concomitant]
  10. TRASYLOL [Suspect]
     Indication: CORONARY ARTERY BYPASS
     Route: 042
     Dates: start: 20060607
  11. ADVAIR DISKUS 100/50 [Concomitant]
     Dosage: 250MCG/50 ONE PUFF
     Route: 048
  12. TRAZODONE HYDROCHLORIDE [Concomitant]
  13. LOSARTAN POTASSIUM [Concomitant]
  14. NORVASC [Concomitant]
     Dosage: 10 MG, QD
     Route: 048
  15. PREVACID [Concomitant]
     Dosage: 30 MG, QD
     Route: 048
  16. IBUPROFEN [Concomitant]
     Dosage: 200MG-800MG, EVERY FOUR TO SIX HRS
     Route: 048
  17. PRILOSEC [Concomitant]
  18. TRASYLOL [Suspect]
     Indication: ATRIAL SEPTAL DEFECT REPAIR
  19. NEURONTIN [Concomitant]
     Dosage: 600 MG, TID
     Route: 048
  20. VALTREX [Concomitant]
     Dosage: 500 MG, QD
     Route: 048
  21. BENZODIAZEPINE DERIVATIVES [Concomitant]
  22. BENZODIAZEPINES [Concomitant]
  23. LASIX [Concomitant]
  24. COZAAR [Concomitant]
     Dosage: 100 MG, QD
     Route: 048
  25. METHOTREXATE [Concomitant]
  26. LEXAPRO [Concomitant]
     Dosage: 20 MG, QD
     Route: 048
  27. LIPITOR [Concomitant]
     Dosage: 80 MG, QD
     Route: 048
  28. PIROXICAM [Concomitant]
     Dosage: 20 MG, QD
     Route: 048
  29. ALBUTEROL [Concomitant]
     Dosage: 2 PUFF(S), Q4HR AS NECESSARY
     Route: 048
  30. INSULIN [INSULIN] [Concomitant]
  31. PROZAC [Concomitant]
  32. CLONIDINE [Concomitant]
  33. INSULIN [Concomitant]

REACTIONS (12)
  - RENAL INJURY [None]
  - PAIN [None]
  - PSYCHOLOGICAL TRAUMA [None]
  - INJURY [None]
  - RENAL IMPAIRMENT [None]
  - EMOTIONAL DISTRESS [None]
  - RENAL FAILURE [None]
  - STRESS [None]
  - ANXIETY [None]
  - UNEVALUABLE EVENT [None]
  - FEAR [None]
  - ANHEDONIA [None]
